FAERS Safety Report 12433972 (Version 1)
Quarter: 2016Q2

REPORT INFORMATION
  Report Type: Report from Study
  Country: AR (occurrence: AR)
  Receive Date: 20160603
  Receipt Date: 20160603
  Transmission Date: 20160815
  Serious: Yes (Other)
  Sender: FDA-Public Use
  Company Number: AR-ABBVIE-16P-007-1642077-00

PATIENT
  Age: 33 Year
  Sex: Female

DRUGS (2)
  1. KALETRA [Suspect]
     Active Substance: LOPINAVIR\RITONAVIR
     Indication: ANTIRETROVIRAL THERAPY
     Dosage: 1 COURSE; NOT TAKEN PRIOR TO CONCEPTION; SECOND TRIMESTER EARLIEST EXPOSURE
     Route: 048
     Dates: start: 20120209
  2. LAMIVUDINE AND ZIDOVUDINE [Suspect]
     Active Substance: LAMIVUDINE\ZIDOVUDINE
     Indication: ANTIRETROVIRAL THERAPY
     Dosage: TAB/CAPS; 1 COURSE; NOT TAKEN PRIOR TO CONCEPTION; SECOND TRIMESTER EARLIEST EXPOSURE
     Route: 048
     Dates: start: 20120209

REACTIONS (2)
  - Stillbirth [Unknown]
  - Exposure during pregnancy [Unknown]

NARRATIVE: CASE EVENT DATE: 20120425
